FAERS Safety Report 10442156 (Version 1)
Quarter: 2014Q3

REPORT INFORMATION
  Report Type: Spontaneous
  Country: US (occurrence: US)
  Receive Date: 20140909
  Receipt Date: 20140909
  Transmission Date: 20150326
  Serious: Yes (Other)
  Sender: FDA-Public Use
  Company Number: US-BRISTOL-MYERS SQUIBB COMPANY-21365259

PATIENT

DRUGS (8)
  1. SUTENT [Suspect]
     Active Substance: SUNITINIB MALATE
  2. VITAMIN D [Concomitant]
     Active Substance: CHOLECALCIFEROL
  3. FERROUS SULFATE [Concomitant]
     Active Substance: FERROUS SULFATE\FERROUS SULFATE, DRIED
  4. ENALAPRIL [Concomitant]
     Active Substance: ENALAPRIL
  5. LASIX [Concomitant]
     Active Substance: FUROSEMIDE
  6. COUMADIN [Suspect]
     Active Substance: WARFARIN SODIUM
  7. VITAMIN B12 [Concomitant]
     Active Substance: CYANOCOBALAMIN
  8. HYDROCODONE [Concomitant]
     Active Substance: HYDROCODONE
     Indication: PAIN

REACTIONS (5)
  - Asthenia [Unknown]
  - Fatigue [Unknown]
  - Full blood count decreased [Recovered/Resolved]
  - Gastrointestinal haemorrhage [Unknown]
  - Neoplasm [Unknown]
